FAERS Safety Report 15322264 (Version 3)
Quarter: 2022Q4

REPORT INFORMATION
  Report Type: Spontaneous
  Country: IT (occurrence: IT)
  Receive Date: 20180827
  Receipt Date: 20221004
  Transmission Date: 20230112
  Serious: Yes (Other)
  Sender: FDA-Public Use
  Company Number: PHHY2018IT015839

PATIENT
  Age: 45 Year
  Sex: Female

DRUGS (8)
  1. AMOXICILLIN TRIHYDRATE [Suspect]
     Active Substance: AMOXICILLIN
     Indication: Product used for unknown indication
     Dosage: UNK
     Route: 065
  2. CEFACLOR [Suspect]
     Active Substance: CEFACLOR
     Indication: Product used for unknown indication
     Dosage: 2 MG/ML IN 0.9% NACL, UNK
     Route: 023
  3. CEFACLOR [Suspect]
     Active Substance: CEFACLOR
     Dosage: 5% IN PETROLATUM, UNK
     Route: 061
  4. CEPHALEXIN [Suspect]
     Active Substance: CEPHALEXIN
     Indication: Product used for unknown indication
     Dosage: 2 MG/ML IN 0.9% NACL, UNK
     Route: 023
  5. CEPHALEXIN [Suspect]
     Active Substance: CEPHALEXIN
     Dosage: 5% IN PETROLATUM, UNK
     Route: 061
  6. CEFADROXIL [Suspect]
     Active Substance: CEFADROXIL
     Indication: Product used for unknown indication
     Dosage: 2 MG/ML IN 0.9% NACL, UNK
     Route: 023
  7. CEFADROXIL [Suspect]
     Active Substance: CEFADROXIL
     Dosage: 5% IN PETROLATUM, UNK
     Route: 061
  8. BACAMPICILLIN [Suspect]
     Active Substance: BACAMPICILLIN
     Indication: Product used for unknown indication
     Dosage: UNK
     Route: 065

REACTIONS (5)
  - Type IV hypersensitivity reaction [Unknown]
  - Acute generalised exanthematous pustulosis [Unknown]
  - Cross sensitivity reaction [Unknown]
  - Urticaria [Unknown]
  - Dermatitis bullous [Unknown]
